FAERS Safety Report 14820554 (Version 1)
Quarter: 2018Q2

REPORT INFORMATION
  Report Type: Report from Study
  Country: GB (occurrence: GB)
  Receive Date: 20180427
  Receipt Date: 20180427
  Transmission Date: 20180711
  Serious: Yes (Other)
  Sender: FDA-Public Use
  Company Number: GB-MYLANLABS-2018M1026713

PATIENT
  Age: 49 Year

DRUGS (2)
  1. PREDNISOLONE ACETATE. [Concomitant]
     Active Substance: PREDNISOLONE ACETATE
     Indication: PRODUCT USED FOR UNKNOWN INDICATION
     Route: 065
  2. MITOMYCIN. [Suspect]
     Active Substance: MITOMYCIN
     Indication: SCLERECTOMY
     Dosage: 0.2MG/ML; MITOMYCIN WAS APPLIED FOR 2-3 MINUTES
     Route: 065

REACTIONS (4)
  - Myopia [Unknown]
  - Visual acuity reduced [Not Recovered/Not Resolved]
  - Maculopathy [Unknown]
  - Hypotony of eye [Recovered/Resolved]
